FAERS Safety Report 11909747 (Version 1)
Quarter: 2016Q1

REPORT INFORMATION
  Report Type: Spontaneous
  Country: US (occurrence: US)
  Receive Date: 20160112
  Receipt Date: 20160112
  Transmission Date: 20160526
  Serious: Yes (Hospitalization)
  Sender: FDA-Public Use
  Company Number: US-ENDO PHARMACEUTICALS INC.-2016-000023

PATIENT
  Sex: Female
  Weight: 59.02 kg

DRUGS (8)
  1. LIDOCAINE. [Concomitant]
     Active Substance: LIDOCAINE
     Indication: BACK PAIN
     Dosage: APPLY PATCH TO THE MIDDLE OF LOWER BACK A COUPLE TIMES A WEEK AS NEEDED
     Route: 062
  2. SYNTHROID [Concomitant]
     Active Substance: LEVOTHYROXINE SODIUM
     Indication: HYPOTHYROIDISM
     Route: 048
     Dates: start: 2005
  3. FLEXERIL [Suspect]
     Active Substance: CYCLOBENZAPRINE HYDROCHLORIDE
     Indication: PRODUCT USED FOR UNKNOWN INDICATION
     Route: 065
  4. VALACYCLOVIR [Concomitant]
     Active Substance: VALACYCLOVIR HYDROCHLORIDE
     Indication: HERPES SIMPLEX
     Dosage: 500 MG 1 TABLET TWICE A DAY FOR 5 DAYS THEN 1 TABLET ONCE A DAY FOR 5 DAYS AS NEEDED
     Route: 048
     Dates: start: 1980
  5. CYCLOBENZAPRINE [Concomitant]
     Active Substance: CYCLOBENZAPRINE
     Indication: MUSCLE SPASMS
     Dosage: 1/4 TAB AS NEEDED
     Route: 048
     Dates: start: 1990
  6. PERCOCET [Suspect]
     Active Substance: ACETAMINOPHEN\OXYCODONE HYDROCHLORIDE
     Indication: PAIN
     Route: 065
  7. MONTELUKAST SODIUM. [Concomitant]
     Active Substance: MONTELUKAST SODIUM
     Indication: ASTHMA
     Route: 048
     Dates: start: 1998
  8. MONTELUKAST SODIUM. [Concomitant]
     Active Substance: MONTELUKAST SODIUM
     Indication: HYPERSENSITIVITY

REACTIONS (7)
  - Skin haemorrhage [Recovered/Resolved]
  - Palpitations [Recovered/Resolved]
  - Withdrawal syndrome [Recovered/Resolved]
  - Mood swings [Recovered/Resolved]
  - Activities of daily living impaired [Recovered/Resolved]
  - Hypersensitivity [Recovered/Resolved]
  - Hallucination [Recovered/Resolved]
